FAERS Safety Report 6270366-9 (Version None)
Quarter: 2009Q3

REPORT INFORMATION
  Report Type: 
  Country: None (occurrence: None)
  Receive Date: 20090716
  Receipt Date: 20090709
  Transmission Date: 20100115
  Serious: Yes (Hospitalization)
  Sender: FDA-Public Use
  Company Number: B0583538A

PATIENT
  Age: 79 Year

DRUGS (2)
  1. VALTREX [Suspect]
     Indication: HERPES ZOSTER
     Dosage: 1000MG THREE TIMES PER DAY
     Route: 048
     Dates: start: 20090706, end: 20090707
  2. ACYCLOVIR [Concomitant]
     Indication: HERPES ZOSTER
     Route: 042
     Dates: start: 20090706, end: 20090706

REACTIONS (5)
  - DISORIENTATION [None]
  - DIZZINESS [None]
  - NAUSEA [None]
  - NEPHROPATHY [None]
  - VOMITING [None]
